FAERS Safety Report 18601793 (Version 2)
Quarter: 2021Q1

REPORT INFORMATION
  Report Type: Spontaneous
  Country: US (occurrence: US)
  Receive Date: 20201210
  Receipt Date: 20210126
  Transmission Date: 20210419
  Serious: Yes (Life-Threatening, Hospitalization)
  Sender: FDA-Public Use
  Company Number: US-TEVA-2020-US-1856336

PATIENT
  Age: 51 Year
  Sex: Female

DRUGS (5)
  1. TIZANIDINE. [Suspect]
     Active Substance: TIZANIDINE
     Indication: INTENTIONAL OVERDOSE
     Route: 048
  2. ALTERIL (MELATONIN, TRYPTOPHAN, L?) [Suspect]
     Active Substance: DIETARY SUPPLEMENT
     Indication: INTENTIONAL OVERDOSE
     Dosage: FORMULATION: PILL
     Route: 048
  3. PREDNISONE. [Suspect]
     Active Substance: PREDNISONE
     Indication: INTENTIONAL OVERDOSE
     Route: 048
  4. HYDROCODONE [Suspect]
     Active Substance: HYDROCODONE
     Indication: INTENTIONAL OVERDOSE
     Route: 048
  5. ENALAPRIL [Suspect]
     Active Substance: ENALAPRIL
     Indication: INTENTIONAL OVERDOSE
     Route: 048

REACTIONS (15)
  - Generalised tonic-clonic seizure [Recovered/Resolved]
  - Rhabdomyolysis [Recovered/Resolved]
  - Hyporesponsive to stimuli [Recovered/Resolved]
  - Renal tubular necrosis [Recovering/Resolving]
  - Acute hepatic failure [Recovered/Resolved]
  - Cardiogenic shock [Recovered/Resolved]
  - Coagulopathy [Recovering/Resolving]
  - Stress cardiomyopathy [Recovered/Resolved]
  - False positive investigation result [Unknown]
  - Acidosis [Recovering/Resolving]
  - Hypoxia [Recovered/Resolved]
  - Oliguria [Recovering/Resolving]
  - Hepatitis [Recovered/Resolved]
  - Intentional overdose [Recovering/Resolving]
  - Cardiac failure acute [Recovered/Resolved]
